FAERS Safety Report 5048859-1 (Version None)
Quarter: 2006Q3

REPORT INFORMATION
  Report Type: 
  Country: None (occurrence: None)
  Receive Date: 20060712
  Receipt Date: 20060630
  Transmission Date: 20061208
  Serious: Yes (Life-Threatening)
  Sender: FDA-Public Use
  Company Number: DE-BRISTOL-MYERS SQUIBB COMPANY-13431739

PATIENT
  Age: 36 Year
  Sex: Male
  Weight: 90 kg

DRUGS (7)
  1. LITALIR [Suspect]
     Indication: GLIOBLASTOMA
     Dates: end: 20060501
  2. GLEEVEC [Suspect]
     Indication: GLIOBLASTOMA
     Dates: start: 20060301, end: 20060501
  3. DEXAMETHASONE TAB [Concomitant]
     Dates: start: 20060317
  4. PANTOPRAZOLE [Concomitant]
  5. LAMOTRIGINE [Concomitant]
     Indication: CONVULSION
  6. KEPPRA [Concomitant]
     Indication: CONVULSION
  7. KALINOR [Concomitant]
     Route: 048

REACTIONS (5)
  - HEADACHE [None]
  - HEART RATE INCREASED [None]
  - HYPERHIDROSIS [None]
  - MUSCLE CONTRACTIONS INVOLUNTARY [None]
  - MUSCLE SPASMS [None]
